FAERS Safety Report 20954733 (Version 1)
Quarter: 2022Q2

REPORT INFORMATION
  Report Type: Spontaneous
  Country: US (occurrence: US)
  Receive Date: 20220614
  Receipt Date: 20220614
  Transmission Date: 20220721
  Serious: No
  Sender: FDA-Public Use
  Company Number: US-TEVA-2022-US-2044013

PATIENT
  Sex: Female

DRUGS (15)
  1. COPAXONE [Suspect]
     Active Substance: GLATIRAMER ACETATE
     Indication: Multiple sclerosis
     Dosage: FORM STRENGTH: UNKNOWN
     Route: 065
     Dates: start: 2001, end: 2007
  2. NUVIGIL [Concomitant]
     Active Substance: ARMODAFINIL
  3. SERTRALINE [Concomitant]
     Active Substance: SERTRALINE HYDROCHLORIDE
  4. CALCIUM\CHOLECALCIFEROL [Concomitant]
     Active Substance: CALCIUM\CHOLECALCIFEROL
  5. ATORVASTATIN [Concomitant]
     Active Substance: ATORVASTATIN
  6. MODAFINIL [Concomitant]
     Active Substance: MODAFINIL
  7. COLLAGEN [Concomitant]
     Active Substance: COLLAGEN
  8. FENUGREEK SEED [Concomitant]
     Active Substance: FENUGREEK SEED
  9. DONGQUAI ROOT [Concomitant]
  10. ESTRADIOL [Concomitant]
     Active Substance: ESTRADIOL
  11. CALCIUM CARBONATE [Concomitant]
     Active Substance: CALCIUM CARBONATE
  12. BENADRYL [Concomitant]
     Active Substance: DIPHENHYDRAMINE HYDROCHLORIDE
  13. VITAMIN B12 [Concomitant]
     Active Substance: CYANOCOBALAMIN
  14. VITAMIN D [Concomitant]
     Active Substance: VITAMIN D NOS
  15. VITAMIN K [Concomitant]
     Active Substance: PHYTONADIONE

REACTIONS (3)
  - Fatigue [Unknown]
  - Needle fatigue [Unknown]
  - Personality disorder [Unknown]
